FAERS Safety Report 10110283 (Version 2)
Quarter: 2014Q2

REPORT INFORMATION
  Report Type: Report from Study
  Country: CA (occurrence: CA)
  Receive Date: 20140425
  Receipt Date: 20140506
  Transmission Date: 20141212
  Serious: Yes (Hospitalization)
  Sender: FDA-Public Use
  Company Number: CA-JNJFOC-20140415575

PATIENT
  Age: 23 Year
  Sex: Male
  Weight: 71.7 kg

DRUGS (5)
  1. REMICADE [Suspect]
     Indication: COLITIS ULCERATIVE
     Dosage: INDUCATION ONCE EVERY 2,6 WEEKS THEN ONCE EVERY 8 WEEKS
     Route: 042
     Dates: start: 20140416
  2. URSODIOL [Concomitant]
     Route: 048
  3. AZATHIOPRIN [Concomitant]
     Route: 048
  4. PREDNISONE [Concomitant]
     Route: 048
  5. FOLIC ACID [Concomitant]
     Route: 048

REACTIONS (1)
  - Anxiety [Recovered/Resolved]
